FAERS Safety Report 17293125 (Version 1)
Quarter: 2020Q1

REPORT INFORMATION
  Report Type: Spontaneous
  Country: US (occurrence: US)
  Receive Date: 20191231
  Receipt Date: 20191231
  Transmission Date: 20200409
  Serious: Yes (Other)
  Sender: FDA-Public Use
  Company Number: None

PATIENT
  Age: 62 Year
  Sex: Male
  Weight: 96.62 kg

DRUGS (22)
  1. MAGNESIUM OXIDE. [Concomitant]
     Active Substance: MAGNESIUM OXIDE
  2. VITAMIN B2 (AS RIBOFLAVIN) [Concomitant]
  3. FOLATE (AS FOLIC ACID) [Concomitant]
  4. VITAMIN B12 (AS CYANOCOBALAMIN) [Concomitant]
  5. BIOTIN [Concomitant]
     Active Substance: BIOTIN
  6. LINOLEIC ACID (OMEGA-6) [Concomitant]
  7. VITAMIN B COMPLEX [Concomitant]
     Active Substance: CYANOCOBALAMIN\DEXPANTHENOL\NIACINAMIDE\PYRIDOXINE HYDROCHLORIDE\RIBOFLAVIN 5^-PHOSPHATE SODIUM\THIAMINE HYDROCHLORIDE\VITAMIN B COMPLEX
  8. PANTOTHENIC ACID (AS D-CALCIUM PANTOTHENATE) [Concomitant]
  9. FLAXSEED [Concomitant]
     Active Substance: FLAX SEED
  10. OLEIC ACID (OMEGA-9) [Concomitant]
  11. RED YEAST RICE [Concomitant]
     Active Substance: DIETARY SUPPLEMENT
  12. VITAMIN D3 [Concomitant]
     Active Substance: CHOLECALCIFEROL
  13. VITAMIN B6 (AS PYRIDOXINE HYDROCHLORIDE) [Concomitant]
  14. OTHER FATTY ACIDS [Concomitant]
  15. LISINOPRIL. [Concomitant]
     Active Substance: LISINOPRIL
  16. LUTEIN [Concomitant]
     Active Substance: LUTEIN
  17. FOLIC ACID. [Concomitant]
     Active Substance: FOLIC ACID
  18. VITAMIN  C (AS ASCORBIC ACID) [Concomitant]
  19. VITAMIN B1 (AS THIAMIN MONONITRATE) [Concomitant]
  20. VITAMIN B3 (AS NIACINAMIDE) [Concomitant]
  21. TAMSULOSIN 0.4MG CAP ZYD [Suspect]
     Active Substance: TAMSULOSIN
     Indication: BENIGN PROSTATIC HYPERPLASIA
     Dosage: ?          QUANTITY:1 ;?
     Route: 048
     Dates: start: 20191115, end: 20191115
  22. ALPHA-LINOLENIC ACID (OMEGA-3) [Concomitant]

REACTIONS (7)
  - Asthenia [None]
  - Hyperhidrosis [None]
  - Hypoglycaemia [None]
  - Unresponsive to stimuli [None]
  - Fatigue [None]
  - Seizure [None]
  - Loss of consciousness [None]

NARRATIVE: CASE EVENT DATE: 20191116
